FAERS Safety Report 5327114-6 (Version None)
Quarter: 2007Q2

REPORT INFORMATION
  Report Type: 
  Country: None (occurrence: None)
  Receive Date: 20070514
  Receipt Date: 20070501
  Transmission Date: 20071010
  Serious: Yes (Hospitalization)
  Sender: FDA-Public Use
  Company Number: 2007-01289

PATIENT
  Age: 52 Year
  Sex: Male

DRUGS (13)
  1. VELCADE [Suspect]
     Indication: MULTIPLE MYELOMA
     Dates: start: 20060308
  2. VELCADE [Suspect]
     Indication: MULTIPLE MYELOMA
     Dates: start: 20060420
  3. DEXAMETHASONE [Suspect]
     Indication: MULTIPLE MYELOMA
     Dates: start: 20060308
  4. DEXAMETHASONE [Suspect]
     Indication: MULTIPLE MYELOMA
     Dates: start: 20060420
  5. CISPLATIN [Suspect]
     Indication: MULTIPLE MYELOMA
     Dates: start: 20060308
  6. CISPLATIN [Suspect]
     Indication: MULTIPLE MYELOMA
     Dates: start: 20060420
  7. DOXORUBICIN HCL [Suspect]
     Indication: MULTIPLE MYELOMA
     Dates: start: 20060308
  8. CYCLOPHOSPHAMIDE [Suspect]
     Indication: MULTIPLE MYELOMA
     Dates: start: 20060308
  9. CYCLOPHOSPHAMIDE [Suspect]
     Indication: MULTIPLE MYELOMA
     Dates: start: 20060420
  10. ETOPOSIDE [Suspect]
     Indication: MULTIPLE MYELOMA
     Dates: start: 20060308
  11. ETOPOSIDE [Suspect]
     Indication: MULTIPLE MYELOMA
     Dates: start: 20060420
  12. MELPHALAN(MELPHALAN) VIAL [Suspect]
     Indication: MULTIPLE MYELOMA
     Dosage: 200.00 MG/M2
     Dates: start: 20060607
  13. MELPHALAN(MELPHALAN) VIAL [Suspect]
     Indication: MULTIPLE MYELOMA
     Dosage: 200.00 MG/M2
     Dates: start: 20061005

REACTIONS (3)
  - COLITIS [None]
  - FEBRILE NEUTROPENIA [None]
  - PNEUMONIA [None]
